FAERS Safety Report 9536201 (Version 1)
Quarter: 2013Q2

REPORT INFORMATION
  Report Type: Spontaneous
  Country: US (occurrence: None)
  Receive Date: 20130418
  Receipt Date: 20130418
  Transmission Date: 20140414
  Serious: Yes (Other)
  Sender: FDA-Public Use
  Company Number: 1303USA001888

PATIENT
  Sex: 0

DRUGS (4)
  1. SINGULAIR [Suspect]
     Indication: ASTHMA
  2. AMITRIPTYLINE HYDROCHLORIDE (AMITRIPTYLINE HYDROCHLORIDE) [Concomitant]
  3. SINGULAIR (MONTELUKAST SODIUM) TABLET [Concomitant]
  4. FLUTICASONE PROPIONATE (FLUTICASONE PROPIONATE) [Concomitant]

REACTIONS (2)
  - Drug ineffective [None]
  - Asthma [None]
